FAERS Safety Report 9286831 (Version 1)
Quarter: 2013Q2

REPORT INFORMATION
  Report Type: Spontaneous
  Country: GB (occurrence: None)
  Receive Date: 20130509
  Receipt Date: 20130509
  Transmission Date: 20140414
  Serious: Yes (Other)
  Sender: FDA-Public Use
  Company Number: SYM-2013-03559

PATIENT
  Age: 54 Year
  Sex: Female

DRUGS (2)
  1. EFUDIX [Suspect]
     Indication: PRODUCT USED FOR UNKNOWN INDICATION
     Route: 061
     Dates: start: 20130411
  2. FUSIDIC ACID (FUSIDIC ACID) (FUSIDIC ACID) [Concomitant]

REACTIONS (2)
  - Headache [None]
  - Malaise [None]
